FAERS Safety Report 10764901 (Version 1)
Quarter: 2015Q1

REPORT INFORMATION
  Report Type: Spontaneous
  Country: US (occurrence: None)
  Receive Date: 20150204
  Receipt Date: 20150204
  Transmission Date: 20150721
  Serious: Yes (Other)
  Sender: FDA-Public Use
  Company Number: None

PATIENT
  Age: 72 Year
  Sex: Female

DRUGS (1)
  1. LUCENTIS [Suspect]
     Active Substance: RANIBIZUMAB
     Indication: VENOUS OCCLUSION
     Dosage: Q4-6WK INTRAVITREALLY
     Dates: start: 20150102

REACTIONS (2)
  - Sinusitis [None]
  - Eye pain [None]

NARRATIVE: CASE EVENT DATE: 20150102
